FAERS Safety Report 9262094 (Version 2)
Quarter: 2013Q3

REPORT INFORMATION
  Report Type: Spontaneous
  Country: CA (occurrence: CA)
  Receive Date: 20130430
  Receipt Date: 20130801
  Transmission Date: 20140515
  Serious: Yes (Other)
  Sender: FDA-Public Use
  Company Number: CA-AMGEN-CANSP2013029025

PATIENT
  Age: 37 Year
  Sex: Female

DRUGS (7)
  1. ENBREL [Suspect]
     Indication: RHEUMATOID ARTHRITIS
     Dosage: 50 MG, QWK
     Route: 065
     Dates: start: 20130211
  2. EFFEXOR [Concomitant]
     Dosage: UNK
  3. PANTOLOC                           /01263204/ [Concomitant]
     Dosage: UNK
  4. PREDNISONE [Concomitant]
     Dosage: UNK
  5. INSULIN [Concomitant]
     Dosage: UNK
  6. ESTROGEN [Concomitant]
     Dosage: UNK
  7. HYDROMORPH CONTIN [Concomitant]
     Dosage: UNK

REACTIONS (2)
  - Rash pruritic [Recovered/Resolved]
  - Rash generalised [Recovered/Resolved]
